FAERS Safety Report 15154806 (Version 1)
Quarter: 2018Q3

REPORT INFORMATION
  Report Type: Spontaneous
  Country: BR (occurrence: BR)
  Receive Date: 20180717
  Receipt Date: 20180717
  Transmission Date: 20181010
  Serious: Yes (Hospitalization, Other)
  Sender: FDA-Public Use
  Company Number: BR-GLAXOSMITHKLINE-BR2018GSK124529

PATIENT
  Age: 1 Year
  Sex: Male
  Weight: 9 kg

DRUGS (4)
  1. SERETIDE [Suspect]
     Active Substance: FLUTICASONE PROPIONATE\SALMETEROL XINAFOATE
     Indication: STENOSIS
     Dosage: 2 PUFF(S), BID
     Route: 055
  2. AEROLIN [Suspect]
     Active Substance: ALBUTEROL
     Indication: DYSPNOEA
     Dosage: 3 PUFF(S), (EVERY 6 HOURS)
     Route: 055
     Dates: start: 20180217
  3. CELESTAMINE [Concomitant]
     Active Substance: BETAMETHASONE\DEXCHLORPHENIRAMINE MALEATE
     Indication: DYSPNOEA
     Dosage: 25 ML, BID
     Route: 048
     Dates: start: 20180705
  4. MONTELUKAST SODIUM CHEWABLE [Concomitant]
     Active Substance: MONTELUKAST SODIUM
     Indication: ASTHMA
     Dosage: 1 DF, UNK (TABLETS PER DAY)
     Route: 048
     Dates: start: 20180624

REACTIONS (5)
  - Drug prescribing error [Not Recovered/Not Resolved]
  - Hospitalisation [Unknown]
  - Off label use [Unknown]
  - Product use in unapproved indication [Unknown]
  - Drug administered to patient of inappropriate age [Unknown]

NARRATIVE: CASE EVENT DATE: 20180217
